FAERS Safety Report 4303199-0 (Version None)
Quarter: 2004Q1

REPORT INFORMATION
  Report Type: 
  Country: None (occurrence: None)
  Receive Date: 20040126
  Receipt Date: 20031017
  Transmission Date: 20041129
  Serious: No
  Sender: FDA-Public Use
  Company Number: USA030948419

PATIENT
  Age: 5 Year
  Sex: Male
  Weight: 18 kg

DRUGS (4)
  1. STRATTERA [Suspect]
     Indication: ATTENTION DEFICIT/HYPERACTIVITY DISORDER
     Dosage: 25 MG/DAY
     Dates: start: 20030901
  2. PROZAC [Suspect]
     Indication: DISTURBANCE IN ATTENTION
     Dates: start: 20030901, end: 20030901
  3. ADDERALL 10 [Concomitant]
  4. METADATE (METHYLPHENIDATE) [Concomitant]

REACTIONS (10)
  - ABNORMAL DREAMS [None]
  - DISTURBANCE IN ATTENTION [None]
  - DRUG EFFECT DECREASED [None]
  - DRUG INTERACTION [None]
  - DYSPHAGIA [None]
  - FATIGUE [None]
  - HYPERTENSION [None]
  - IRRITABILITY [None]
  - PSYCHOMOTOR HYPERACTIVITY [None]
  - VOMITING [None]
